FAERS Safety Report 4390995-7 (Version None)
Quarter: 2004Q3

REPORT INFORMATION
  Report Type: 
  Country: None (occurrence: None)
  Receive Date: 20040701
  Receipt Date: 20040701
  Transmission Date: 20050211
  Serious: Yes (Other)
  Sender: FDA-Public Use
  Company Number: None

PATIENT
  Age: 13 Year
  Weight: 45.8133 kg

DRUGS (6)
  1. ABILIFY [Suspect]
     Indication: BIPOLAR DISORDER
     Dosage: 10 MG PO QAM
     Route: 048
     Dates: start: 20040628, end: 20040629
  2. DEPAKOTE [Concomitant]
  3. MVI W/FE [Concomitant]
  4. STRATTERA [Concomitant]
  5. BENADRYL [Concomitant]
  6. VITAMIN E [Concomitant]

REACTIONS (1)
  - MUSCLE TIGHTNESS [None]
